FAERS Safety Report 8786146 (Version 3)
Quarter: 2013Q1

REPORT INFORMATION
  Report Type: Spontaneous
  Country: US (occurrence: US)
  Receive Date: 20120914
  Receipt Date: 20130125
  Transmission Date: 20140127
  Serious: Yes (Other)
  Sender: FDA-Public Use
  Company Number: US-ABBOTT-12P-163-0976433-00

PATIENT
  Sex: Female
  Weight: 86.71 kg

DRUGS (8)
  1. HUMIRA [Suspect]
     Route: 058
     Dates: start: 201103
  2. DEXILANT [Concomitant]
     Indication: GASTROOESOPHAGEAL REFLUX DISEASE
     Route: 048
  3. REQUIP [Concomitant]
     Indication: RESTLESS LEGS SYNDROME
     Dosage: AT BEDTIME
  4. KLONOPIN [Concomitant]
     Indication: RESTLESS LEGS SYNDROME
     Dosage: AT BEDTIME
     Route: 048
  5. ELAVIL [Concomitant]
     Indication: ABDOMINAL PAIN UPPER
  6. DONNATAL [Concomitant]
     Indication: IRRITABLE BOWEL SYNDROME
  7. PHENERGAN [Concomitant]
     Indication: NAUSEA
  8. ROXICODONE [Concomitant]
     Indication: PAIN

REACTIONS (16)
  - Anal abscess [Recovered/Resolved]
  - Infectious mononucleosis [Recovering/Resolving]
  - Pain [Not Recovered/Not Resolved]
  - Fatigue [Not Recovered/Not Resolved]
  - Influenza like illness [Not Recovered/Not Resolved]
  - Fatigue [Not Recovered/Not Resolved]
  - Stress [Not Recovered/Not Resolved]
  - Bronchitis [Recovered/Resolved]
  - Pneumonia [Recovered/Resolved]
  - Weight increased [Not Recovered/Not Resolved]
  - Arthritis [Not Recovered/Not Resolved]
  - Crohn^s disease [Not Recovered/Not Resolved]
  - Irritable bowel syndrome [Not Recovered/Not Resolved]
  - Nausea [Not Recovered/Not Resolved]
  - Depression [Not Recovered/Not Resolved]
  - Emotional disorder [Not Recovered/Not Resolved]
